FAERS Safety Report 5006871-2 (Version None)
Quarter: 2006Q2

REPORT INFORMATION
  Report Type: 
  Country: None (occurrence: None)
  Receive Date: 20060517
  Receipt Date: 20060508
  Transmission Date: 20061013
  Serious: No
  Sender: FDA-Public Use
  Company Number: 163-21880-06040651

PATIENT
  Sex: Male

DRUGS (1)
  1. REVLIMID [Suspect]
     Indication: MYELODYSPLASTIC SYNDROME
     Dosage: DRUG NOT GIVEN

REACTIONS (1)
  - NO ADVERSE EFFECT [None]
